FAERS Safety Report 8189806-3 (Version None)
Quarter: 2012Q1

REPORT INFORMATION
  Report Type: 
  Country: None (occurrence: None)
  Receive Date: 20120307
  Receipt Date: 20110627
  Transmission Date: 20120608
  Serious: No
  Sender: FDA-Public Use
  Company Number: US-GLAXOSMITHKLINE-A0933262A

PATIENT
  Age: 54 Year
  Sex: Male

DRUGS (5)
  1. SINEMET [Concomitant]
  2. REQUIP [Suspect]
     Indication: PARKINSON'S DISEASE
     Dosage: 3MG THREE TIMES PER DAY
     Route: 048
  3. CELEXA [Concomitant]
  4. SELEGILINE [Concomitant]
  5. OMEPRAZOLE [Concomitant]

REACTIONS (1)
  - DYSPNOEA [None]
